FAERS Safety Report 8107045-9 (Version None)
Quarter: 2012Q1

REPORT INFORMATION
  Report Type: 
  Country: None (occurrence: None)
  Receive Date: 20120202
  Receipt Date: 20120126
  Transmission Date: 20120608
  Serious: Yes (Hospitalization, Other)
  Sender: FDA-Public Use
  Company Number: US-BAYER-201027346NA

PATIENT
  Age: 19 Year
  Sex: Female
  Weight: 70 kg

DRUGS (10)
  1. YASMIN [Suspect]
     Indication: PRODUCT USED FOR UNKNOWN INDICATION
     Dosage: UNK UNK, QD
     Dates: end: 20070821
  2. ZOLOFT [Concomitant]
     Indication: DEPRESSION
     Dosage: 50 MG, QD
     Route: 048
  3. MOTRIN [Concomitant]
     Dosage: UNK UNK, PRN
     Dates: start: 19970101
  4. NEOCON [Concomitant]
     Dosage: UNK
     Dates: start: 20070531
  5. NEOCON [Concomitant]
     Dosage: UNK
     Dates: start: 20070223
  6. VICODIN [Concomitant]
  7. YAZ [Suspect]
     Indication: PREMENSTRUAL SYNDROME
  8. ANTIBIOTICS [Concomitant]
  9. ZYRTEC [Concomitant]
     Indication: SEASONAL ALLERGY
     Dosage: UNK
     Dates: start: 20070101
  10. YAZ [Suspect]
     Indication: CONTRACEPTION
     Dosage: UNK UNK, QD
     Route: 048
     Dates: start: 20070601, end: 20070815

REACTIONS (7)
  - DYSPNOEA [None]
  - PLEURISY [None]
  - PULMONARY EMBOLISM [None]
  - PLEURITIC PAIN [None]
  - PLEURAL EFFUSION [None]
  - NON-CARDIAC CHEST PAIN [None]
  - PULMONARY INFARCTION [None]
